FAERS Safety Report 5160953-3 (Version None)
Quarter: 2006Q4

REPORT INFORMATION
  Report Type: 
  Country: None (occurrence: None)
  Receive Date: 20061130
  Receipt Date: 20060131
  Transmission Date: 20070319
  Serious: No
  Sender: FDA-Public Use
  Company Number: US-BRISTOL-MYERS SQUIBB COMPANY-13264320

PATIENT
  Age: 67 Year
  Sex: Female
  Weight: 106 kg

DRUGS (9)
  1. AVALIDE [Suspect]
     Indication: HYPERTENSION
     Dates: start: 20060109
  2. DIOVAN [Concomitant]
  3. GLEEVEC [Concomitant]
  4. GLIPIZIDE [Concomitant]
  5. VALSARTAN [Concomitant]
  6. METFORMIN HCL [Concomitant]
  7. LORAZEPAM [Concomitant]
  8. OXYIR [Concomitant]
  9. PRILOSEC [Concomitant]

REACTIONS (1)
  - SKIN BURNING SENSATION [None]
